FAERS Safety Report 5528569-4 (Version None)
Quarter: 2007Q4

REPORT INFORMATION
  Report Type: 
  Country: None (occurrence: None)
  Receive Date: 20071123
  Receipt Date: 20071113
  Transmission Date: 20080405
  Serious: Yes (Disabling, Other)
  Sender: FDA-Public Use
  Company Number: 167-C5013-07061259

PATIENT
  Age: 59 Year
  Sex: Male
  Weight: 107.2 kg

DRUGS (7)
  1. CC-5013 (LENALIDOMIDE) (CAPSULES) [Suspect]
     Indication: MULTIPLE MYELOMA
     Dosage: 25 MG, DAYS 1-21, ORAL
     Route: 048
     Dates: start: 20070308, end: 20070808
  2. DEXAMETHASONE TAB [Suspect]
     Indication: MULTIPLE MYELOMA
     Dosage: 40 MG, DAYS 1-4, ORAL
     Route: 048
     Dates: start: 20070308, end: 20070808
  3. ZOLEDRONIC ACID [Concomitant]
  4. ALLOPURINOL [Concomitant]
  5. INSULIN [Concomitant]
  6. WARFARIN SODIUM [Concomitant]
  7. GTN (GLYCERYL TRINITRATE) (SPRAY (NOT INHALATION) [Concomitant]

REACTIONS (7)
  - BONE DISORDER [None]
  - EXOSTOSIS [None]
  - FACIAL PAIN [None]
  - IMPAIRED HEALING [None]
  - MYALGIA [None]
  - OSTEONECROSIS [None]
  - RESORPTION BONE INCREASED [None]
